FAERS Safety Report 8179987 (Version 2)
Quarter: 2013Q1

REPORT INFORMATION
  Report Type: Spontaneous
  Country: US (occurrence: US)
  Receive Date: 20111013
  Receipt Date: 20120418
  Transmission Date: 20140127
  Serious: Yes (Hospitalization, Other)
  Sender: FDA-Public Use
  Company Number: None

PATIENT
  Age: 11 Year
  Sex: Male

DRUGS (12)
  1. KEPPRA [Suspect]
     Indication: PETIT MAL EPILEPSY
     Route: 048
  2. KAPVAY [Suspect]
     Dosage: 0.1 MG QAM; 0.2 MG QHS
     Dates: start: 2011, end: 20110830
  3. ZYRTEC [Concomitant]
  4. CLONIDINE HYDROCHLORIDE [Concomitant]
  5. CONCERTA [Concomitant]
     Dates: end: 200904
  6. PROZAC [Concomitant]
  7. TRAZODONE HYDROCHLORIDE [Concomitant]
  8. MELATONIN [Concomitant]
  9. SINGULAIR [Concomitant]
  10. ALBUTEROL [Concomitant]
  11. ADVAIR DISKUS [Concomitant]
  12. PREVACID [Concomitant]

REACTIONS (5)
  - Hallucination, visual [Unknown]
  - Irregular sleep phase [Recovering/Resolving]
  - Mood altered [Unknown]
  - Sedation [Unknown]
  - Psychomotor hyperactivity [Unknown]
